FAERS Safety Report 8958848 (Version 1)
Quarter: 2012Q4

REPORT INFORMATION
  Report Type: 
  Country: GB (occurrence: GB)
  Receive Date: 20121212
  Receipt Date: 20121212
  Transmission Date: 20130627
  Serious: Yes (Other)
  Sender: FDA-Public Use
  Company Number: GB-MYLANLABS-2012S1024884

PATIENT
  Age: 36 Year
  Sex: Female
  Weight: 116 kg

DRUGS (1)
  1. VENLAFAXINE [Suspect]
     Indication: DEPRESSION
     Route: 048

REACTIONS (2)
  - Migraine [Recovered/Resolved]
  - Product formulation issue [Unknown]
